FAERS Safety Report 19844680 (Version 1)
Quarter: 2021Q3

REPORT INFORMATION
  Report Type: Spontaneous
  Country: IN (occurrence: IN)
  Receive Date: 20210916
  Receipt Date: 20210916
  Transmission Date: 20211014
  Serious: Yes (Other)
  Sender: FDA-Public Use
  Company Number: IN-ALLERGAN-2131993US

PATIENT
  Sex: Female

DRUGS (12)
  1. CARDIVAS [CARVEDILOL] [Concomitant]
     Active Substance: CARVEDILOL
     Dosage: AFTER FOOD
     Route: 048
     Dates: start: 20210723, end: 20210729
  2. RAMISTAR [Concomitant]
     Active Substance: RAMIPRIL
     Dosage: ACTUAL: (0?0?1)
     Dates: start: 20210723, end: 20210729
  3. ULTRACET [Concomitant]
     Active Substance: ACETAMINOPHEN\TRAMADOL HYDROCHLORIDE
     Indication: HEADACHE
     Dosage: AS NEEDED (PRN) AFTER FOOD
     Dates: start: 20210723, end: 20210729
  4. CRESEMBA [Suspect]
     Active Substance: ISAVUCONAZONIUM SULFATE
     Dosage: ACTUAL:200 MG, ONCE A DAY (OD)
     Route: 048
     Dates: start: 20210609
  5. VANCOMYCIN [Concomitant]
     Active Substance: VANCOMYCIN
     Dosage: UNK
  6. CRESEMBA [Suspect]
     Active Substance: ISAVUCONAZONIUM SULFATE
     Indication: MUCORMYCOSIS
     Dosage: ACTUAL:200 MG, ONCE A DAY (X 2 MONTHS)
     Route: 048
     Dates: start: 20210824
  7. AMPHOTERICIN B, LIPOSOME [Suspect]
     Active Substance: AMPHOTERICIN B
     Indication: PRODUCT USED FOR UNKNOWN INDICATION
     Dosage: UNK
  8. LASIX [Concomitant]
     Active Substance: FUROSEMIDE
     Dosage: UNK, 1X/DAY (1?0?0) ? AFTER FOOD
     Route: 048
     Dates: start: 20210723, end: 20210729
  9. AMPHOTERICIN B. [Concomitant]
     Active Substance: AMPHOTERICIN B
     Dosage: UNK
  10. ALDACTONE [Concomitant]
     Active Substance: SPIRONOLACTONE
     Dosage: UNK, 1X/DAY (1?0?0)
     Route: 048
     Dates: start: 20210723, end: 20210729
  11. CEFTAZIDIME;AVIBACTAM ? BP [Suspect]
     Active Substance: AVIBACTAM SODIUM\CEFTAZIDIME
     Indication: PRODUCT USED FOR UNKNOWN INDICATION
     Dosage: UNK
  12. SOLSPRE [Concomitant]
     Dosage: 2 PUFFS 4X/DAY (1?1?1?1)
     Route: 045
     Dates: start: 20210723, end: 20210730

REACTIONS (11)
  - Pyrexia [Unknown]
  - Vomiting [Unknown]
  - Pneumonia klebsiella [Unknown]
  - Left ventricular dysfunction [Unknown]
  - Cardiac dysfunction [Unknown]
  - Pulmonary oedema [Unknown]
  - Ventricular hypokinesia [Unknown]
  - Diarrhoea [Unknown]
  - Blood creatinine increased [Unknown]
  - Pericardial effusion [Unknown]
  - Left atrial dilatation [Unknown]

NARRATIVE: CASE EVENT DATE: 20210622
